FAERS Safety Report 14367695 (Version 1)
Quarter: 2018Q1

REPORT INFORMATION
  Report Type: Spontaneous
  Country: US (occurrence: US)
  Receive Date: 20180108
  Receipt Date: 20180108
  Transmission Date: 20180509
  Serious: Yes (Hospitalization, Other)
  Sender: FDA-Public Use
  Company Number: None

PATIENT
  Age: 48 Year
  Sex: Male
  Weight: 127.01 kg

DRUGS (5)
  1. DEXAMETHASONE SODIUM PHOSPHATE. [Suspect]
     Active Substance: DEXAMETHASONE SODIUM PHOSPHATE
  2. FENTANYL CITRATE. [Suspect]
     Active Substance: FENTANYL CITRATE
  3. IODINATED CONTRAST MEDIA [Suspect]
     Active Substance: IODINE
     Indication: SPINAL PAIN
     Dates: start: 20170803
  4. PROPOFOL. [Suspect]
     Active Substance: PROPOFOL
  5. MIDAZOLAM HYDROCHLORIDE. [Suspect]
     Active Substance: MIDAZOLAM HYDROCHLORIDE

REACTIONS (10)
  - Impaired healing [None]
  - Groin pain [None]
  - Extradural abscess [None]
  - Dysuria [None]
  - Injection site warmth [None]
  - Prostate infection [None]
  - Wound [None]
  - Injection site erythema [None]
  - Injection site swelling [None]
  - Pain [None]

NARRATIVE: CASE EVENT DATE: 20170803
